FAERS Safety Report 8273768-4 (Version None)
Quarter: 2012Q2

REPORT INFORMATION
  Report Type: 
  Country: None (occurrence: None)
  Receive Date: 20120411
  Receipt Date: 20120322
  Transmission Date: 20120825
  Serious: No
  Sender: FDA-Public Use
  Company Number: US-ROXANE LABORATORIES, INC.-2012-RO-00673RO

PATIENT
  Sex: Male

DRUGS (4)
  1. SEROQUEL [Concomitant]
  2. ZALEPLON [Suspect]
     Indication: SLEEP DISORDER
     Dosage: 10 MG
     Route: 048
     Dates: end: 20120215
  3. ZALEPLON [Suspect]
     Dosage: 20 MG
     Route: 048
     Dates: end: 20120215
  4. ACYCLOVIR [Concomitant]

REACTIONS (2)
  - INTENTIONAL DRUG MISUSE [None]
  - DRUG INEFFECTIVE [None]
